FAERS Safety Report 10513814 (Version 5)
Quarter: 2015Q1

REPORT INFORMATION
  Report Type: Spontaneous
  Country: US (occurrence: US)
  Receive Date: 20141013
  Receipt Date: 20150325
  Transmission Date: 20150720
  Serious: Yes (Death, Life-Threatening, Other)
  Sender: FDA-Public Use
  Company Number: US-CELGENE-163-POMAL-14093734

PATIENT
  Age: 51 Year
  Sex: Male

DRUGS (5)
  1. PROCRIT [Concomitant]
     Active Substance: ERYTHROPOIETIN
     Indication: PRODUCT USED FOR UNKNOWN INDICATION
     Dosage: 20 MILLIGRAM
     Route: 058
     Dates: start: 20140828
  2. KYPROLIS [Concomitant]
     Active Substance: CARFILZOMIB
     Indication: PRODUCT USED FOR UNKNOWN INDICATION
     Route: 065
     Dates: start: 201306
  3. DOXEL [Concomitant]
     Indication: PLASMA CELL MYELOMA
     Route: 048
     Dates: start: 201409
  4. VINCRISTINE [Concomitant]
     Active Substance: VINCRISTINE
     Indication: PLASMA CELL MYELOMA
     Route: 048
     Dates: start: 201409
  5. POMALYST [Suspect]
     Active Substance: POMALIDOMIDE
     Indication: PLASMA CELL MYELOMA
     Dosage: 4 MILLIGRAM
     Route: 048
     Dates: start: 201306, end: 20140902

REACTIONS (1)
  - Plasmacytoma [Fatal]

NARRATIVE: CASE EVENT DATE: 201408
